FAERS Safety Report 7275406-6 (Version None)
Quarter: 2011Q1

REPORT INFORMATION
  Report Type: 
  Country: None (occurrence: None)
  Receive Date: 20110131
  Receipt Date: 20110118
  Transmission Date: 20110831
  Serious: Yes (Hospitalization)
  Sender: FDA-Public Use
  Company Number: IDA-00487

PATIENT
  Age: 45 Year
  Sex: Female

DRUGS (4)
  1. LEVOTHYROX (LEVOTHYROXINE SODIUM) [Suspect]
  2. AVLOCARDYL (PROPRANOLOL) [Suspect]
     Dosage: 40 MG BID ORAL FORMULATION: TABLET
  3. MEDIATOR (BENFLUOREX HYDROCHLORIDE) [Suspect]
     Dosage: 3 DF DAILY
     Dates: start: 20080101, end: 20080601
  4. AMITRIPTYLINE HCL [Suspect]
     Dosage: 18 GTT

REACTIONS (5)
  - AORTIC VALVE INCOMPETENCE [None]
  - MITRAL VALVE INCOMPETENCE [None]
  - DEEP VEIN THROMBOSIS [None]
  - LEFT VENTRICULAR FAILURE [None]
  - PULMONARY EMBOLISM [None]
